FAERS Safety Report 5454623-1 (Version None)
Quarter: 2007Q3

REPORT INFORMATION
  Report Type: 
  Country: None (occurrence: None)
  Receive Date: 20070917
  Receipt Date: 20070912
  Transmission Date: 20080115
  Serious: Yes (Death, Hospitalization)
  Sender: FDA-Public Use
  Company Number: US-BRISTOL-MYERS SQUIBB COMPANY-13906599

PATIENT
  Age: 82 Year
  Sex: Female
  Weight: 70 kg

DRUGS (23)
  1. ORENCIA [Suspect]
     Indication: RHEUMATOID ARTHRITIS
  2. PEPCID [Concomitant]
  3. LACTOBACILLUS [Concomitant]
  4. VANCOMYCIN [Concomitant]
  5. METRONIDAZOLE [Concomitant]
  6. XANAX [Concomitant]
  7. NEURONTIN [Concomitant]
  8. TOPROL-XL [Concomitant]
  9. HEPARIN [Concomitant]
  10. FOSAMAX [Concomitant]
  11. ULTRAM [Concomitant]
  12. VITAMIN E [Concomitant]
  13. OS-CAL [Concomitant]
  14. GLUCOSAMINE [Concomitant]
  15. CHONDROITIN [Concomitant]
  16. FOLIC ACID [Concomitant]
  17. METHOTREXATE BRAND UNKNOWN [Concomitant]
  18. PREDNISONE [Concomitant]
  19. PLAQUENIL [Concomitant]
  20. ASPIRIN [Concomitant]
  21. ALBUTEROL [Concomitant]
  22. NITROGLYCERIN [Concomitant]
  23. ARAVA [Concomitant]

REACTIONS (1)
  - DEATH [None]
